FAERS Safety Report 19621641 (Version 1)
Quarter: 2021Q3

REPORT INFORMATION
  Report Type: Spontaneous
  Country: SE (occurrence: SE)
  Receive Date: 20210728
  Receipt Date: 20210728
  Transmission Date: 20211014
  Serious: Yes (Hospitalization)
  Sender: FDA-Public Use
  Company Number: SE-TEVA-2021-SE-1936650

PATIENT
  Age: 69 Year
  Sex: Male

DRUGS (4)
  1. SIMVASTATIN. [Suspect]
     Active Substance: SIMVASTATIN
     Dosage: 40 MGX1, RECENTLY INCREASED TO 80 MGX1 (DATE UNKNOWN)
     Dates: end: 20210620
  2. TROMBYL 75 MG 1 X 1 [Concomitant]
  3. BICALUTAMIDE 150 MG 1 X 1 [Concomitant]
  4. ALLOPURINOL 100 MG 2 X 1 [Concomitant]

REACTIONS (2)
  - Acute kidney injury [Not Recovered/Not Resolved]
  - Rhabdomyolysis [Not Recovered/Not Resolved]

NARRATIVE: CASE EVENT DATE: 20210620
